FAERS Safety Report 13454314 (Version 1)
Quarter: 2017Q2

REPORT INFORMATION
  Report Type: Spontaneous
  Country: AU (occurrence: AU)
  Receive Date: 20170418
  Receipt Date: 20170418
  Transmission Date: 20170830
  Serious: Yes (Other)
  Sender: FDA-Public Use
  Company Number: AU-UCBSA-2017014556

PATIENT
  Age: 32 Year
  Sex: Female

DRUGS (1)
  1. CIMZIA [Suspect]
     Active Substance: CERTOLIZUMAB PEGOL
     Indication: RHEUMATOID ARTHRITIS
     Dosage: 200 MG, UNK

REACTIONS (5)
  - Off label use [Unknown]
  - HELLP syndrome [Unknown]
  - Premature delivery [Unknown]
  - Pregnancy [Unknown]
  - Pre-eclampsia [Unknown]
